FAERS Safety Report 6469463-4 (Version None)
Quarter: 2009Q4

REPORT INFORMATION
  Report Type: 
  Country: None (occurrence: None)
  Receive Date: 20091203
  Receipt Date: 20091123
  Transmission Date: 20100525
  Serious: Yes (Other)
  Sender: FDA-Public Use
  Company Number: CA-BAYER-200936471NA

PATIENT
  Age: 67 Year
  Sex: Male

DRUGS (9)
  1. ADALAT CC [Suspect]
     Indication: HYPERTENSION
     Dosage: TOTAL DAILY DOSE: 30 MG
     Route: 048
     Dates: end: 20081211
  2. ADVAIR DISKUS 100/50 [Concomitant]
     Dosage: TOTAL DAILY DOSE: 2 PUFF
     Route: 055
  3. ENALAPRIL [Concomitant]
     Route: 048
  4. ENALAPRIL [Concomitant]
     Route: 048
     Dates: start: 20081211
  5. HYDROCHLOROTHIAZIDE [Concomitant]
     Route: 048
  6. MELOXICAM [Concomitant]
     Route: 048
  7. PREDNISONE [Concomitant]
     Route: 048
  8. ALBUTEROL [Concomitant]
     Dosage: 2 PUFFS 4 TIMES DAILY AS NEEDED
     Route: 055
  9. SINGULAIR [Concomitant]
     Route: 048

REACTIONS (2)
  - DRUG INTERACTION [None]
  - GINGIVAL HYPOPLASIA [None]
